FAERS Safety Report 20321374 (Version 2)
Quarter: 2022Q1

REPORT INFORMATION
  Report Type: Spontaneous
  Country: US (occurrence: None)
  Receive Date: 20220111
  Receipt Date: 20220121
  Transmission Date: 20220423
  Serious: No
  Sender: FDA-Public Use
  Company Number: 2022A006111

PATIENT
  Sex: Female

DRUGS (1)
  1. SYMBICORT [Suspect]
     Active Substance: BUDESONIDE\FORMOTEROL FUMARATE DIHYDRATE
     Dosage: 160/4.5 MCG, 120 ACTUATIONS, 2 PUFFS IN THE AM AND IN THE PM.
     Route: 055

REACTIONS (3)
  - Fatigue [Unknown]
  - Device use confusion [Unknown]
  - Wrong technique in device usage process [Unknown]
